FAERS Safety Report 18942431 (Version 3)
Quarter: 2021Q1

REPORT INFORMATION
  Report Type: Spontaneous
  Country: US (occurrence: US)
  Receive Date: 20210225
  Receipt Date: 20210324
  Transmission Date: 20210420
  Serious: Yes (Hospitalization, Other)
  Sender: FDA-Public Use
  Company Number: US-PFIZER INC-2021201214

PATIENT
  Age: 16 Month
  Sex: Male

DRUGS (4)
  1. DILANTIN [Suspect]
     Active Substance: PHENYTOIN
     Dosage: 25 MG, 2X/DAY
     Route: 048
     Dates: start: 20140514
  2. DILANTIN [Suspect]
     Active Substance: PHENYTOIN
     Indication: SEIZURE
     Dosage: 25 MG, 1X/DAY
     Route: 048
     Dates: start: 20130804
  3. DILANTIN [Suspect]
     Active Substance: PHENYTOIN
     Dosage: 25 MG, 3X/DAY
     Route: 048
     Dates: start: 20140830, end: 20141017
  4. DILANTIN [Suspect]
     Active Substance: PHENYTOIN
     Dosage: 25 MG, 3X/DAY
     Route: 048
     Dates: start: 20141025

REACTIONS (8)
  - Gait disturbance [Unknown]
  - Ataxia [Unknown]
  - Developmental delay [Unknown]
  - Cerebellar atrophy [Unknown]
  - Feeding intolerance [Unknown]
  - Infantile vomiting [Unknown]
  - Constipation [Unknown]
  - Brain injury [Unknown]

NARRATIVE: CASE EVENT DATE: 20140830
